FAERS Safety Report 14782449 (Version 1)
Quarter: 2018Q2

REPORT INFORMATION
  Report Type: Spontaneous
  Country: FR (occurrence: FR)
  Receive Date: 20180420
  Receipt Date: 20180420
  Transmission Date: 20180711
  Serious: Yes (Other)
  Sender: FDA-Public Use
  Company Number: FR-MERCK KGAA-2046126

PATIENT
  Age: 35 Year
  Sex: Female
  Weight: 81 kg

DRUGS (1)
  1. NOVOTHYROX [Suspect]
     Active Substance: LEVOTHYROXINE SODIUM
     Indication: POST PROCEDURAL HYPOTHYROIDISM
     Dates: start: 2017

REACTIONS (25)
  - Arthralgia [None]
  - Psychiatric symptom [None]
  - Suspiciousness [None]
  - Somnolence [None]
  - Mental fatigue [None]
  - Palpitations [None]
  - Fibromyalgia [None]
  - Irritability [None]
  - Dyspnoea [Not Recovered/Not Resolved]
  - Headache [Not Recovered/Not Resolved]
  - Fatigue [Not Recovered/Not Resolved]
  - Depression [None]
  - Amnesia [None]
  - Arrhythmia [Not Recovered/Not Resolved]
  - Anxiety [None]
  - Decreased appetite [None]
  - Stress [None]
  - Personal relationship issue [None]
  - Apathy [None]
  - Muscle spasms [None]
  - Dizziness [Not Recovered/Not Resolved]
  - Crying [None]
  - Loss of personal independence in daily activities [None]
  - Blood thyroid stimulating hormone decreased [None]
  - Maternal exposure during pregnancy [None]

NARRATIVE: CASE EVENT DATE: 2017
